FAERS Safety Report 5216104-X (Version None)
Quarter: 2007Q1

REPORT INFORMATION
  Report Type: 
  Country: None (occurrence: None)
  Receive Date: 20070123
  Receipt Date: 20070122
  Transmission Date: 20070707
  Serious: Yes (Hospitalization)
  Sender: FDA-Public Use
  Company Number: JP-BRISTOL-MYERS SQUIBB COMPANY-13625686

PATIENT
  Age: 70 Year
  Sex: Male

DRUGS (3)
  1. TAXOL [Suspect]
     Indication: LUNG ADENOCARCINOMA
     Route: 042
     Dates: start: 20061130, end: 20061207
  2. PARAPLATIN [Concomitant]
     Route: 042
     Dates: start: 20061130, end: 20061130
  3. GEMZAR [Concomitant]

REACTIONS (3)
  - COLD SWEAT [None]
  - LOSS OF CONSCIOUSNESS [None]
  - TACHYCARDIA [None]
